FAERS Safety Report 5757820-0 (Version None)
Quarter: 2008Q2

REPORT INFORMATION
  Report Type: 
  Country: None (occurrence: None)
  Receive Date: 20080603
  Receipt Date: 20080526
  Transmission Date: 20081010
  Serious: Yes (Disabling)
  Sender: FDA-Public Use
  Company Number: PHHY2008IT08981

PATIENT
  Sex: Male

DRUGS (2)
  1. CYCLOSPORINE [Suspect]
  2. DRUG THERAPY NOS [Suspect]

REACTIONS (2)
  - HEMIANOPIA [None]
  - VISUAL FIELD DEFECT [None]
